FAERS Safety Report 19441981 (Version 1)
Quarter: 2021Q2

REPORT INFORMATION
  Report Type: Spontaneous
  Country: US (occurrence: US)
  Receive Date: 20210618
  Receipt Date: 20210618
  Transmission Date: 20210717
  Serious: Yes (Hospitalization)
  Sender: FDA-Public Use
  Company Number: None

PATIENT
  Age: 85 Year
  Sex: Female

DRUGS (1)
  1. BEXAROTENE. [Suspect]
     Active Substance: BEXAROTENE
     Indication: CD30 EXPRESSION
     Route: 048
     Dates: start: 20180216

REACTIONS (3)
  - Leg amputation [None]
  - Cardiovascular insufficiency [None]
  - Toe amputation [None]

NARRATIVE: CASE EVENT DATE: 20210515
